FAERS Safety Report 6151378-2 (Version None)
Quarter: 2009Q2

REPORT INFORMATION
  Report Type: 
  Country: None (occurrence: None)
  Receive Date: 20090410
  Receipt Date: 20090406
  Transmission Date: 20091009
  Serious: Yes (Other)
  Sender: FDA-Public Use
  Company Number: FR-B.I. PHARMACEUTICALS,INC./RIDGEFIELD-2009-DE-02416BY

PATIENT
  Sex: Male
  Weight: 76 kg

DRUGS (1)
  1. PRITOR [Suspect]
     Indication: HYPERTENSION
     Route: 048
     Dates: start: 20090201, end: 20090201

REACTIONS (1)
  - COLITIS [None]
